FAERS Safety Report 8328063-1 (Version None)
Quarter: 2012Q2

REPORT INFORMATION
  Report Type: 
  Country: None (occurrence: None)
  Receive Date: 20120502
  Receipt Date: 20120425
  Transmission Date: 20120825
  Serious: Yes (Hospitalization)
  Sender: FDA-Public Use
  Company Number: PHHY2011FR94976

PATIENT
  Sex: Male

DRUGS (2)
  1. TRAMADOL HCL [Suspect]
     Indication: PAIN
     Dosage: 300 MG, UNK
  2. VOLTAREN [Suspect]
     Indication: PAIN
     Dosage: 75 MG, UNK
     Route: 048
     Dates: end: 20111001

REACTIONS (8)
  - OSTEOMYELITIS CHRONIC [None]
  - PRIMARY SEQUESTRUM [None]
  - OSTEONECROSIS [None]
  - PURULENT DISCHARGE [None]
  - CONCOMITANT DISEASE AGGRAVATED [None]
  - BONE LESION [None]
  - OSTEITIS [None]
  - NEUTROPHIL FUNCTION DISORDER [None]
